FAERS Safety Report 23768529 (Version 2)
Quarter: 2025Q1

REPORT INFORMATION
  Report Type: Spontaneous
  Country: US (occurrence: US)
  Receive Date: 20240422
  Receipt Date: 20250124
  Transmission Date: 20250409
  Serious: Yes (Other)
  Sender: Unknown Manufacturer
  Company Number: US-MELINTA THERAPEUTICS, LLC-US-MLNT-24-00093

PATIENT

DRUGS (7)
  1. METOPROLOL SUCCINATE [Suspect]
     Active Substance: METOPROLOL SUCCINATE
     Indication: Product used for unknown indication
     Route: 048
     Dates: start: 202310
  2. ENTRESTO [Suspect]
     Active Substance: SACUBITRIL\VALSARTAN
     Indication: Cardiac failure
     Dosage: 24/26 MG, BID
     Route: 048
     Dates: start: 202310
  3. ENTRESTO [Suspect]
     Active Substance: SACUBITRIL\VALSARTAN
     Dosage: 24/26 MG, QD
     Route: 048
     Dates: start: 20231125
  4. COUMADIN [Suspect]
     Active Substance: WARFARIN SODIUM
     Indication: Product used for unknown indication
     Dates: start: 202310
  5. FARXIGA [Suspect]
     Active Substance: DAPAGLIFLOZIN PROPANEDIOL
     Indication: Product used for unknown indication
     Dates: start: 202310
  6. JANUVIA [Suspect]
     Active Substance: SITAGLIPTIN PHOSPHATE
     Indication: Product used for unknown indication
     Dates: start: 202310
  7. FUROSEMIDE [Suspect]
     Active Substance: FUROSEMIDE
     Indication: Product used for unknown indication

REACTIONS (14)
  - Vitreous haematoma [Recovering/Resolving]
  - Rheumatoid arthritis [Unknown]
  - Pollakiuria [Not Recovered/Not Resolved]
  - Restless legs syndrome [Recovered/Resolved]
  - Blood potassium increased [Unknown]
  - Pain in extremity [Unknown]
  - Head injury [Recovered/Resolved]
  - Vitreous floaters [Recovering/Resolving]
  - Fall [Recovered/Resolved]
  - Flank pain [Unknown]
  - Peripheral swelling [Unknown]
  - Weight increased [Recovering/Resolving]
  - Fatigue [Recovering/Resolving]
  - Insomnia [Unknown]

NARRATIVE: CASE EVENT DATE: 20231001
